FAERS Safety Report 6885708-0 (Version None)
Quarter: 2010Q3

REPORT INFORMATION
  Report Type: 
  Country: None (occurrence: None)
  Receive Date: 20100729
  Receipt Date: 20080916
  Transmission Date: 20110219
  Serious: Yes (Other)
  Sender: FDA-Public Use
  Company Number: US-PFIZER INC-2008078049

PATIENT
  Sex: Female
  Weight: 72.6 kg

DRUGS (4)
  1. CELEBREX [Suspect]
     Indication: BACK PAIN
     Route: 048
     Dates: start: 20080801
  2. ANTIHYPERTENSIVES [Concomitant]
     Indication: HYPERTENSION
  3. MULTI-VITAMINS [Concomitant]
  4. VOLTAREN [Concomitant]

REACTIONS (1)
  - CHEST PAIN [None]
